FAERS Safety Report 13436086 (Version 4)
Quarter: 2017Q4

REPORT INFORMATION
  Report Type: Report from Study
  Country: CA (occurrence: CA)
  Receive Date: 20170413
  Receipt Date: 20171011
  Transmission Date: 20180320
  Serious: Yes (Death, Hospitalization)
  Sender: FDA-Public Use
  Company Number: CA-CELLTRION INC.-2017CA004443

PATIENT

DRUGS (12)
  1. CEFTRIAXONE. [Concomitant]
     Active Substance: CEFTRIAXONE
  2. TRANEXAMIC ACID. [Concomitant]
     Active Substance: TRANEXAMIC ACID
  3. CLONAZEPAM. [Concomitant]
     Active Substance: CLONAZEPAM
  4. OXYBUTININ ACCORD [Concomitant]
  5. ELIGARD [Suspect]
     Active Substance: LEUPROLIDE ACETATE
     Indication: PROSTATE CANCER
     Dosage: 30 MG, UNK
     Route: 058
     Dates: start: 20141108, end: 20170420
  6. ACETYLSALICYLIC ACID [Concomitant]
     Active Substance: ASPIRIN
  7. ARANESP [Concomitant]
     Active Substance: DARBEPOETIN ALFA
  8. RENVELA [Concomitant]
     Active Substance: SEVELAMER CARBONATE
  9. ZYLOPRIM [Concomitant]
     Active Substance: ALLOPURINOL
  10. TYLENOL [Concomitant]
     Active Substance: ACETAMINOPHEN
  11. LAX-A-DAY [Concomitant]
  12. PANTOLOC                           /01263204/ [Concomitant]
     Active Substance: PANTOPRAZOLE SODIUM

REACTIONS (4)
  - Chronic kidney disease [Fatal]
  - Anaemia [Recovering/Resolving]
  - Disease progression [Fatal]
  - Haematuria [Recovering/Resolving]
